FAERS Safety Report 15546977 (Version 1)
Quarter: 2018Q4

REPORT INFORMATION
  Report Type: Spontaneous
  Country: US (occurrence: US)
  Receive Date: 20181024
  Receipt Date: 20181024
  Transmission Date: 20190205
  Serious: Yes (Life-Threatening, Hospitalization, Disabling)
  Sender: FDA-Public Use
  Company Number: None

PATIENT
  Age: 48 Year
  Sex: Female
  Weight: 129.6 kg

DRUGS (1)
  1. ORENCIA [Suspect]
     Active Substance: ABATACEPT
     Indication: RHEUMATOID ARTHRITIS
     Dates: start: 20171204

REACTIONS (6)
  - Loss of personal independence in daily activities [None]
  - Muscular weakness [None]
  - Pain [None]
  - Walking aid user [None]
  - Arthritis bacterial [None]
  - Fall [None]

NARRATIVE: CASE EVENT DATE: 20180201
